FAERS Safety Report 19054308 (Version 3)
Quarter: 2021Q3

REPORT INFORMATION
  Report Type: Report from Study
  Country: BR (occurrence: BR)
  Receive Date: 20210324
  Receipt Date: 20210721
  Transmission Date: 20211014
  Serious: Yes (Hospitalization, Other)
  Sender: FDA-Public Use
  Company Number: NVSC2021BR066202

PATIENT
  Age: 52 Year
  Sex: Male
  Weight: 83.5 kg

DRUGS (3)
  1. DORFLEX [Concomitant]
     Active Substance: CAFFEINE\DIPYRONE\ORPHENADRINE
     Indication: PAIN
     Dosage: UNK (IF IT HAD PAIN)
     Route: 048
  2. GILENYA [Suspect]
     Active Substance: FINGOLIMOD HYDROCHLORIDE
     Dosage: UNK
     Route: 065
     Dates: start: 2019
  3. GILENYA [Suspect]
     Active Substance: FINGOLIMOD HYDROCHLORIDE
     Indication: MULTIPLE SCLEROSIS
     Dosage: 0.5 MG, QD
     Route: 048
     Dates: start: 20190520

REACTIONS (21)
  - Dyspnoea [Unknown]
  - Lung disorder [Unknown]
  - Blood pressure fluctuation [Recovered/Resolved]
  - Decreased appetite [Recovered/Resolved]
  - Heart rate irregular [Unknown]
  - Bradycardia [Unknown]
  - Multiple sclerosis relapse [Recovered/Resolved]
  - Pain [Unknown]
  - Headache [Unknown]
  - Eating disorder [Unknown]
  - Hypoxia [Unknown]
  - Suspected COVID-19 [Recovered/Resolved]
  - Breath odour [Recovered/Resolved]
  - Body temperature increased [Recovered/Resolved]
  - Hypoxia [Recovered/Resolved]
  - Movement disorder [Unknown]
  - Renal cancer [Recovered/Resolved]
  - Dysstasia [Unknown]
  - Asthenia [Unknown]
  - Blood pressure abnormal [Unknown]
  - Product dose omission issue [Unknown]

NARRATIVE: CASE EVENT DATE: 20201105
